FAERS Safety Report 18920143 (Version 2)
Quarter: 2021Q1

REPORT INFORMATION
  Report Type: Report from Study
  Country: None (occurrence: US)
  Receive Date: 20210222
  Receipt Date: 20210227
  Transmission Date: 20210420
  Serious: Yes (Other)
  Sender: FDA-Public Use
  Company Number: US-ABBVIE-21K-163-3728275-00

PATIENT
  Age: 7 Year
  Sex: Male
  Weight: 27.24 kg

DRUGS (11)
  1. ZONISAMIDE. [Concomitant]
     Active Substance: ZONISAMIDE
     Indication: SEIZURE
  2. SERTRALINE [Concomitant]
     Active Substance: SERTRALINE HYDROCHLORIDE
     Indication: MOOD SWINGS
  3. CLONIDINE. [Concomitant]
     Active Substance: CLONIDINE
     Indication: SLEEP DISORDER
  4. ARIPIPRAZOLE. [Concomitant]
     Active Substance: ARIPIPRAZOLE
     Indication: ANXIETY
  5. GUANFACINE. [Concomitant]
     Active Substance: GUANFACINE
     Indication: ANXIETY
  6. CLONAZEPAM. [Concomitant]
     Active Substance: CLONAZEPAM
     Indication: MOOD SWINGS
  7. HYDROXYZINE [Concomitant]
     Active Substance: HYDROXYZINE HYDROCHLORIDE
     Indication: SLEEP DISORDER
  8. HUMIRA [Suspect]
     Active Substance: ADALIMUMAB
     Indication: COLITIS ULCERATIVE
     Route: 058
     Dates: start: 20210105
  9. CETIRIZINE [Concomitant]
     Active Substance: CETIRIZINE HYDROCHLORIDE
     Indication: HYPERSENSITIVITY
  10. HUMIRA [Suspect]
     Active Substance: ADALIMUMAB
     Indication: CROHN^S DISEASE
  11. FAMOTIDINE. [Concomitant]
     Active Substance: FAMOTIDINE
     Indication: GASTRIC DISORDER

REACTIONS (11)
  - Gastrointestinal tube insertion [Unknown]
  - Drug ineffective [Not Recovered/Not Resolved]
  - Swelling face [Recovered/Resolved]
  - Decreased appetite [Recovering/Resolving]
  - Toothache [Recovered/Resolved]
  - Skin disorder [Unknown]
  - Diarrhoea [Recovered/Resolved]
  - Crohn^s disease [Unknown]
  - Diarrhoea [Not Recovered/Not Resolved]
  - Autism spectrum disorder [Unknown]
  - Tooth abscess [Not Recovered/Not Resolved]

NARRATIVE: CASE EVENT DATE: 20210105
